FAERS Safety Report 10040245 (Version 2)
Quarter: 2014Q2

REPORT INFORMATION
  Report Type: Spontaneous
  Country: US (occurrence: US)
  Receive Date: 20140327
  Receipt Date: 20140507
  Transmission Date: 20141212
  Serious: No
  Sender: FDA-Public Use
  Company Number: US-009507513-1403USA008023

PATIENT
  Age: 54 Year
  Sex: Male
  Weight: 92.97 kg

DRUGS (3)
  1. PEGINTRON [Suspect]
     Indication: HEPATITIS C
     Dosage: 150MCG/ ONCE WEEKLY INJECTION
     Route: 058
     Dates: start: 201403
  2. RIBAVIRIN [Concomitant]
     Indication: HEPATITIS C
     Dosage: 1200 MG, UNK
     Route: 048
     Dates: start: 201403
  3. SOVALDI [Concomitant]
     Indication: HEPATITIS C
     Dosage: 400 MG, UNK
     Route: 048
     Dates: start: 201403

REACTIONS (3)
  - Underdose [Recovered/Resolved]
  - No adverse event [Unknown]
  - Product quality issue [Unknown]
